FAERS Safety Report 8392946-7 (Version None)
Quarter: 2012Q2

REPORT INFORMATION
  Report Type: 
  Country: None (occurrence: None)
  Receive Date: 20120529
  Receipt Date: 20120525
  Transmission Date: 20120825
  Serious: Yes (Hospitalization)
  Sender: FDA-Public Use
  Company Number: PHHO2012PL004338

PATIENT
  Sex: Female
  Weight: 57.6 kg

DRUGS (8)
  1. EXEMESTANE [Suspect]
     Indication: BREAST CANCER METASTATIC
     Dosage: 25 MG, QD
     Route: 048
     Dates: start: 20101019, end: 20101130
  2. PLACEBO [Suspect]
     Indication: BREAST CANCER METASTATIC
     Dosage: CODE NOT BROKEN
     Route: 048
     Dates: start: 20101019, end: 20101130
  3. FLUOROURACIL [Suspect]
     Indication: BREAST CANCER
     Dosage: 750 MG, 2/MONTH
     Route: 042
     Dates: start: 20101130, end: 20101207
  4. BLINDED NO TREATMENT RECEIVED [Suspect]
     Indication: BREAST CANCER METASTATIC
     Dosage: CODE NOT BROKEN
     Route: 048
     Dates: start: 20101019, end: 20101130
  5. ECOMER [Concomitant]
     Indication: DECREASED APPETITE
     Dosage: 250 MG
     Route: 048
     Dates: start: 20101019
  6. AFINITOR [Suspect]
     Indication: BREAST CANCER METASTATIC
     Dosage: CODE NOT BROKEN
     Route: 048
     Dates: start: 20101019, end: 20101130
  7. BISOPROLOL FUMARATE [Concomitant]
     Indication: HYPERTENSION
     Dosage: 10 MG, QD
     Route: 048
     Dates: start: 20101019
  8. NAVELBINE [Suspect]
     Indication: BREAST CANCER
     Dosage: 35 MG, 4/MONTH
     Route: 042
     Dates: start: 20101130, end: 20101207

REACTIONS (1)
  - FEBRILE NEUTROPENIA [None]
